FAERS Safety Report 8930172 (Version 1)
Quarter: 2012Q4

REPORT INFORMATION
  Report Type: 
  Country: US (occurrence: US)
  Receive Date: 20121128
  Receipt Date: 20121128
  Transmission Date: 20130627
  Serious: Yes (Life-Threatening, Congenital Anomaly, Other)
  Sender: FDA-Public Use
  Company Number: US-ELI_LILLY_AND_COMPANY-US201211005366

PATIENT

DRUGS (1)
  1. PROZAC [Suspect]
     Dosage: 1 DF, unknown
     Route: 064
     Dates: end: 199611

REACTIONS (8)
  - Tracheal atresia [Unknown]
  - Tracheomalacia [Unknown]
  - Tracheo-oesophageal fistula [Unknown]
  - Limb asymmetry [Unknown]
  - Staphylococcal infection [Unknown]
  - Escherichia infection [Unknown]
  - Attention deficit/hyperactivity disorder [Unknown]
  - Foetal exposure during pregnancy [Recovered/Resolved]
